FAERS Safety Report 14036217 (Version 1)
Quarter: 2017Q4

REPORT INFORMATION
  Report Type: Spontaneous
  Country: US (occurrence: US)
  Receive Date: 20171003
  Receipt Date: 20171003
  Transmission Date: 20180321
  Serious: No
  Sender: FDA-Public Use
  Company Number: US-ROCHE-1957158

PATIENT
  Age: 62 Year
  Sex: Female
  Weight: 49.94 kg

DRUGS (7)
  1. TYLENOL [Concomitant]
     Active Substance: ACETAMINOPHEN
     Dosage: BEFORE THE FIRST ADMINISTRATION OF OCRELIZUMAB (13/JUN/2017)
     Route: 065
  2. OCREVUS [Suspect]
     Active Substance: OCRELIZUMAB
     Indication: PRIMARY PROGRESSIVE MULTIPLE SCLEROSIS
     Dosage: SECOND TREATMENT ON 27/JUN/2017?DAY 1 AND DAY 15 AND THEN EVERY 6 MONTHS ;ONGOING: YES
     Route: 042
     Dates: start: 20170613
  3. TYLENOL [Concomitant]
     Active Substance: ACETAMINOPHEN
     Route: 065
     Dates: start: 20170628
  4. ACETAMINOPHEN. [Concomitant]
     Active Substance: ACETAMINOPHEN
     Dosage: WITH EVERY TREATMENT ;ONGOING: YES?PRE-TREATMENT
     Route: 048
     Dates: start: 20170613
  5. PREDNISONE. [Concomitant]
     Active Substance: PREDNISONE
     Dosage: WITH THE FIRST TREATMENT ONLY ;ONGOING: NO?PRE-TREATMENT
     Route: 048
     Dates: start: 20170613
  6. ACETAMINOPHEN. [Concomitant]
     Active Substance: ACETAMINOPHEN
     Dosage: 2 TABLETS ;ONGOING: UNKNOWN
     Route: 048
     Dates: start: 20170628
  7. BENADRYL [Concomitant]
     Active Substance: DIPHENHYDRAMINE HYDROCHLORIDE
     Dosage: WITH EVERY TREATMENT ;ONGOING: YES?PRE-TREATMENT
     Route: 042
     Dates: start: 20170613

REACTIONS (1)
  - Feeling cold [Not Recovered/Not Resolved]

NARRATIVE: CASE EVENT DATE: 20170628
